FAERS Safety Report 7305243-5 (Version None)
Quarter: 2011Q1

REPORT INFORMATION
  Report Type: 
  Country: None (occurrence: None)
  Receive Date: 20110222
  Receipt Date: 20110215
  Transmission Date: 20110831
  Serious: Yes (Hospitalization, Other)
  Sender: FDA-Public Use
  Company Number: US-PFIZER INC-2010138976

PATIENT
  Sex: Male
  Weight: 95.238 kg

DRUGS (9)
  1. CYMBALTA [Concomitant]
     Indication: NEUROPATHY PERIPHERAL
     Dosage: 60 MG, 1X/DAY
     Route: 048
  2. ACETYLSALICYLIC ACID [Concomitant]
  3. KLONOPIN [Concomitant]
     Dosage: 0.5 MG, 1X/DAY, AT BEDTIME
  4. RAMIPRIL [Suspect]
     Dosage: 2.5 MG, 1X/DAY
     Dates: start: 20100101
  5. NORTRIPTYLINE [Concomitant]
     Dosage: 25 MG, 1X/DAY, AT BEDTIME
  6. LYRICA [Suspect]
     Indication: NEUROPATHY PERIPHERAL
     Dosage: 400 MG, 1X/DAY
     Route: 048
     Dates: start: 20090101
  7. PLAVIX [Concomitant]
  8. METFORMIN [Concomitant]
  9. LANTUS [Concomitant]
     Dosage: UNK

REACTIONS (2)
  - CHEST PAIN [None]
  - BLOOD GLUCOSE INCREASED [None]
